FAERS Safety Report 20081260 (Version 2)
Quarter: 2022Q1

REPORT INFORMATION
  Report Type: Spontaneous
  Country: US (occurrence: None)
  Receive Date: 20211117
  Receipt Date: 20220105
  Transmission Date: 20220424
  Serious: No
  Sender: FDA-Public Use
  Company Number: 2021A787128

PATIENT
  Sex: Male
  Weight: 103.4 kg

DRUGS (2)
  1. BYDUREON BCISE [Suspect]
     Active Substance: EXENATIDE
     Indication: Type 2 diabetes mellitus
     Route: 058
  2. BYDUREON [Suspect]
     Active Substance: EXENATIDE
     Indication: Type 2 diabetes mellitus
     Route: 058

REACTIONS (13)
  - Tension [Unknown]
  - Pain [Unknown]
  - Coagulation time shortened [Unknown]
  - Skin injury [Unknown]
  - Weight increased [Unknown]
  - Anxiety [Unknown]
  - Body height decreased [Unknown]
  - Injection site bruising [Recovering/Resolving]
  - Injection site mass [Recovering/Resolving]
  - Weight decreased [Recovered/Resolved]
  - Device delivery system issue [Unknown]
  - Intentional device misuse [Unknown]
  - Needle issue [Unknown]
